FAERS Safety Report 7525490-7 (Version None)
Quarter: 2011Q2

REPORT INFORMATION
  Report Type: 
  Country: None (occurrence: None)
  Receive Date: 20110602
  Receipt Date: 20110602
  Transmission Date: 20111010
  Serious: Yes (Other)
  Sender: FDA-Public Use
  Company Number: None

PATIENT
  Age: 75 Year
  Sex: Female
  Weight: 58.9676 kg

DRUGS (1)
  1. TOPROL-XL [Suspect]
     Indication: HYPERTENSION
     Dosage: 25 MG 1 TABLET A DAY MOUTH
     Route: 048

REACTIONS (7)
  - INSOMNIA [None]
  - HEADACHE [None]
  - DRUG HYPERSENSITIVITY [None]
  - DRY THROAT [None]
  - DRY MOUTH [None]
  - DRY EYE [None]
  - FOOD ALLERGY [None]
